FAERS Safety Report 8234320-X (Version None)
Quarter: 2012Q1

REPORT INFORMATION
  Report Type: 
  Country: None (occurrence: None)
  Receive Date: 20120326
  Receipt Date: 20120315
  Transmission Date: 20120608
  Serious: Yes (Hospitalization, Other)
  Sender: FDA-Public Use
  Company Number: CA-JNJFOC-20120307915

PATIENT
  Sex: Male
  Weight: 68 kg

DRUGS (9)
  1. REMICADE [Suspect]
     Indication: CROHN'S DISEASE
     Route: 042
     Dates: start: 20081202
  2. APO-DILTIAZ [Concomitant]
  3. CALCIUM CARBONATE [Concomitant]
  4. NITROGLYCERIN [Concomitant]
  5. VITAMIN D [Concomitant]
  6. LIPITOR [Concomitant]
  7. ASPIRIN [Concomitant]
  8. ALL OTHER THERAPEUTIC PRODUCTS [Concomitant]
  9. RAMIPRIL [Concomitant]

REACTIONS (2)
  - SKIN CANCER [None]
  - HIP FRACTURE [None]
